FAERS Safety Report 21988950 (Version 3)
Quarter: 2024Q3

REPORT INFORMATION
  Report Type: Spontaneous
  Country: IT (occurrence: IT)
  Receive Date: 20230214
  Receipt Date: 20240703
  Transmission Date: 20241017
  Serious: Yes (Other)
  Sender: MYLAN
  Company Number: IT-ROCHE-3247284

PATIENT
  Age: 47 Year
  Sex: Male

DRUGS (44)
  1. PREDNISONE [Suspect]
     Active Substance: PREDNISONE
     Indication: Mantle cell lymphoma
     Dosage: UNK, (CHOP), FIRST LINE OF SYSTEMIC TREATMENT
     Route: 042
     Dates: start: 20210401, end: 20211001
  2. PREDNISONE [Suspect]
     Active Substance: PREDNISONE
     Dosage: UNK, (CHOP), FIRST LINE OF SYSTEMIC TREATMENT
     Route: 065
     Dates: start: 202104, end: 202110
  3. CYTARABINE [Suspect]
     Active Substance: CYTARABINE
     Indication: Mantle cell lymphoma
     Dosage: UNK,FIRST LINE SYSTEMIC TREATMENT, R-CHOP/R-DHA
     Route: 042
     Dates: start: 202104, end: 202110
  4. CYTARABINE [Suspect]
     Active Substance: CYTARABINE
     Dosage: UNK,FIRST LINE SYSTEMIC TREATMENT, R-CHOP/R-DHA
     Route: 042
     Dates: start: 202104, end: 202110
  5. CYTARABINE [Suspect]
     Active Substance: CYTARABINE
     Dosage: UNK,FIRST LINE SYSTEMIC TREATMENT, R-CHOP/R-DHA
     Route: 042
     Dates: start: 202104, end: 202110
  6. CYCLOPHOSPHAMIDE [Suspect]
     Active Substance: CYCLOPHOSPHAMIDE
     Indication: Mantle cell lymphoma
     Dosage: UNK,(CHOP), FIRST LINE OF SYSTEMIC TREATMENT
     Route: 042
     Dates: start: 20210401, end: 20211001
  7. CYCLOPHOSPHAMIDE [Suspect]
     Active Substance: CYCLOPHOSPHAMIDE
     Dosage: UNK, (CHOP), FIRST LINE OF SYSTEMIC TREATMENT
     Route: 042
     Dates: start: 202104, end: 202110
  8. VENETOCLAX [Suspect]
     Active Substance: VENETOCLAX
     Indication: Mantle cell lymphoma
     Dosage: UNK (3RD LINE SYSTEMIC TREATMENT, IBRUTINIB + V)
     Route: 042
     Dates: start: 202203, end: 202204
  9. VENETOCLAX [Suspect]
     Active Substance: VENETOCLAX
     Dosage: UNK (3RD LINE SYSTEMIC TREATMENT, IBRUTINIB + V)
     Route: 042
     Dates: start: 202203, end: 202204
  10. DIETARY SUPPLEMENT [Suspect]
     Active Substance: DIETARY SUPPLEMENT
     Indication: Mantle cell lymphoma
     Dosage: UNK, (POLYMER), FIRST LINE OF SYSTEMIC TREATMENT
     Route: 042
     Dates: start: 20210401, end: 20211001
  11. RITUXIMAB [Suspect]
     Active Substance: RITUXIMAB
     Indication: Mantle cell lymphoma
     Dosage: UNK, FIRST LINE OF SYSTEMIC TREATMENT, R-CHOP/R-DH
     Route: 065
     Dates: start: 202104, end: 202110
  12. RITUXIMAB [Suspect]
     Active Substance: RITUXIMAB
     Dosage: UNK, FIRST LINE OF SYSTEMIC TREATMENT, R-CHOP/R-DH
     Route: 042
     Dates: start: 202104, end: 202110
  13. RITUXIMAB [Suspect]
     Active Substance: RITUXIMAB
     Dosage: UNK, FIRST LINE OF SYSTEMIC TREATMENT, R-CHOP/R-DH
     Route: 042
     Dates: start: 202104, end: 202110
  14. RITUXIMAB [Suspect]
     Active Substance: RITUXIMAB
     Dosage: UNK,FOURTH LINE OF SYSTEMIC TREATMENT, POLATUZUMAB
     Route: 042
     Dates: start: 20220428, end: 202205
  15. RITUXIMAB [Suspect]
     Active Substance: RITUXIMAB
     Dosage: UNK,FOURTH LINE OF SYSTEMIC TREATMENT, POLATUZUMAB
     Route: 065
     Dates: start: 202205, end: 202205
  16. RITUXIMAB [Suspect]
     Active Substance: RITUXIMAB
     Dosage: UNK, SIXTH LINE OF SYSTEMIC TREATMENT, POLATUZUMAB
     Route: 042
     Dates: start: 20221011, end: 20221103
  17. RITUXIMAB [Suspect]
     Active Substance: RITUXIMAB
     Dosage: UNK, SIXTH LINE OF SYSTEMIC TREATMENT, POLATUZUMAB
     Route: 065
     Dates: start: 202210, end: 202211
  18. POLIVY [Suspect]
     Active Substance: POLATUZUMAB VEDOTIN-PIIQ
     Indication: Mantle cell lymphoma
     Dosage: 1.8 MILLIGRAM/KILOGRAM
     Route: 042
     Dates: start: 20221001, end: 20221101
  19. POLIVY [Suspect]
     Active Substance: POLATUZUMAB VEDOTIN-PIIQ
     Dosage: UNK, SIXTH LINE SYSTEMIC TREATMENT, POLATUZUMAB
     Route: 065
     Dates: start: 202210, end: 202211
  20. POLIVY [Suspect]
     Active Substance: POLATUZUMAB VEDOTIN-PIIQ
     Dosage: 1.8 MILLIMOLE PER KILOGRAM
     Route: 042
     Dates: start: 20220501, end: 202205
  21. POLIVY [Suspect]
     Active Substance: POLATUZUMAB VEDOTIN-PIIQ
     Dosage: UNK,FOURTH LINE SYSTEMIC TREATMENT, POLATUZUMAB
     Route: 065
     Dates: start: 202205, end: 202205
  22. VINCRISTINE SULFATE [Suspect]
     Active Substance: VINCRISTINE SULFATE
     Indication: Mantle cell lymphoma
     Dosage: UNK, (CHOP), FIRST LINE OF SYSTEMIC TREATMENT
     Route: 042
     Dates: start: 20210401, end: 20211001
  23. VINCRISTINE SULFATE [Suspect]
     Active Substance: VINCRISTINE SULFATE
     Dosage: UNK, (CHOP), FIRST LINE OF SYSTEMIC TREATMENT
     Route: 065
     Dates: start: 202104, end: 202110
  24. DOXORUBICIN [Suspect]
     Active Substance: DOXORUBICIN
     Indication: Mantle cell lymphoma
     Dosage: UNK, (CHOP), FIRST LINE OF SYSTEMIC TREATMENT
     Route: 042
     Dates: start: 20210401, end: 20211001
  25. DOXORUBICIN [Suspect]
     Active Substance: DOXORUBICIN
     Dosage: UNK, FIRST LINE OF SYSTEMIC TREATMENT, R-CHOP/R-DH
     Route: 065
     Dates: start: 202104, end: 202110
  26. BENDAMUSTINE [Suspect]
     Active Substance: BENDAMUSTINE
     Indication: Mantle cell lymphoma
     Dosage: UNK,FOURTH LINE SYSTEMIC TREATMENT, POLATUZUMAB
     Route: 042
     Dates: start: 202205, end: 202205
  27. BENDAMUSTINE [Suspect]
     Active Substance: BENDAMUSTINE
     Dosage: UNK, FOURTH LINE SYSTEMIC TREATMENT, POLATUZUMAB
     Route: 065
     Dates: start: 202205, end: 202205
  28. BENDAMUSTINE [Suspect]
     Active Substance: BENDAMUSTINE
     Dosage: UNK FOURTH LINE SYSTEMIC TREATMENT, POLATUZUMAB
     Route: 042
     Dates: start: 202205, end: 202205
  29. BENDAMUSTINE [Suspect]
     Active Substance: BENDAMUSTINE
     Dosage: UNK,SIXTH LINE OF SYSTEMIC TREATMENT, POLATUZUMAB
     Route: 042
     Dates: start: 202210, end: 202211
  30. BENDAMUSTINE [Suspect]
     Active Substance: BENDAMUSTINE
     Dosage: UNK,SIXTH LINE OF SYSTEMIC TREATMENT, POLATUZUMAB
     Route: 065
     Dates: start: 202210, end: 202211
  31. BENDAMUSTINE [Suspect]
     Active Substance: BENDAMUSTINE
     Dosage: 90 MILLIGRAM/SQ. METER, 90 MG/M2, CYCLIC SIXTH LINE OF SYSTEMIC TREATMENT, POLATUZUMAB VEDOTIN (P-BR
     Route: 042
     Dates: start: 202210, end: 202211
  32. BENDAMUSTINE [Suspect]
     Active Substance: BENDAMUSTINE
     Dosage: 70 MILLIGRAM/KILOGRAM
     Route: 042
     Dates: start: 202205, end: 202205
  33. IMBRUVICA [Suspect]
     Active Substance: IBRUTINIB
     Indication: Mantle cell lymphoma
     Dosage: UNK, SECOND LINE OF SYSTEMIC TREATMENT, IBRUTINIB
     Route: 042
     Dates: start: 20211101, end: 20220201
  34. IMBRUVICA [Suspect]
     Active Substance: IBRUTINIB
     Dosage: UNK, SECOND LINE OF SYSTEMIC TREATMENT, IBRUTINIB
     Route: 065
     Dates: start: 202111, end: 202202
  35. IMBRUVICA [Suspect]
     Active Substance: IBRUTINIB
     Dosage: UNK, THIRD LINE OF SYSTEMIC TREATMENT, IBRUTINIB
     Route: 065
     Dates: start: 202203, end: 202204
  36. IMBRUVICA [Suspect]
     Active Substance: IBRUTINIB
     Dosage: UNK,THIRD LINE OF SYSTEMIC TREATMENT, IBRUTINIB
     Route: 065
     Dates: start: 202203, end: 202204
  37. IMBRUVICA [Suspect]
     Active Substance: IBRUTINIB
     Dosage: UNK, THIRD LINE OF SYSTEMIC TREATMENT, IBRUTINIB
     Route: 065
     Dates: start: 202203, end: 202204
  38. CISPLATIN [Suspect]
     Active Substance: CISPLATIN
     Indication: Mantle cell lymphoma
     Dosage: UNK, FIRST LINE OF SYSTEMIC TREATMENT, R-CHOP/R-DH
     Route: 065
     Dates: start: 202104, end: 202110
  39. CISPLATIN [Suspect]
     Active Substance: CISPLATIN
     Dosage: UNK, FIRST LINE OF SYSTEMIC TREATMENT, R-CHOP/R-DH
     Route: 042
     Dates: start: 202104, end: 202110
  40. CISPLATIN [Suspect]
     Active Substance: CISPLATIN
     Dosage: UNK, FIRST LINE OF SYSTEMIC TREATMENT, R-CHOP/R-DH
     Route: 042
     Dates: start: 202104, end: 202110
  41. CYCLOPHOSPHAMIDE\DOXORUBICIN\PREDNISONE\VINCRISTINE [Suspect]
     Active Substance: CYCLOPHOSPHAMIDE\DOXORUBICIN\PREDNISONE\VINCRISTINE
     Indication: Mantle cell lymphoma
     Dosage: UNK, FIRST LINE OF SYSTEMIC TREATMENT, R-CHOP
     Route: 042
     Dates: start: 20210401, end: 20211001
  42. BACTRIM [Concomitant]
     Active Substance: SULFAMETHOXAZOLE\TRIMETHOPRIM
     Indication: Prophylaxis
     Dosage: UNK, DRUG SEPARATE DOSAGE NUMBER 1
     Route: 065
  43. ACYCLOVIR [Concomitant]
     Active Substance: ACYCLOVIR
     Indication: Prophylaxis
     Dosage: UNK, DRUG SEPARATE DOSAGE NUMBER 1
     Route: 065
  44. LINEZOLID [Concomitant]
     Active Substance: LINEZOLID
     Indication: Product used for unknown indication
     Dosage: UNK,DRUG SEPARATE DOSAGE NUMBER 1
     Route: 065

REACTIONS (3)
  - Cytopenia [Unknown]
  - Lymphadenopathy [Unknown]
  - Off label use [Unknown]

NARRATIVE: CASE EVENT DATE: 20220501
